FAERS Safety Report 21353356 (Version 2)
Quarter: 2022Q3

REPORT INFORMATION
  Report Type: Report from Study
  Country: US (occurrence: US)
  Receive Date: 20220920
  Receipt Date: 20220921
  Transmission Date: 20221026
  Serious: Yes (Other)
  Sender: FDA-Public Use
  Company Number: US-GLAXOSMITHKLINE-US2022GSK132231

PATIENT

DRUGS (1)
  1. FLUTICASONE FUROATE\UMECLIDINIUM BROMIDE\VILANTEROL TRIFENATATE [Suspect]
     Active Substance: FLUTICASONE FUROATE\UMECLIDINIUM BROMIDE\VILANTEROL TRIFENATATE
     Indication: Chronic obstructive pulmonary disease
     Dosage: 100 MCG/MG, PRN
     Route: 055

REACTIONS (3)
  - Acute myocardial infarction [Recovered/Resolved]
  - Cardiac failure congestive [Recovered/Resolved]
  - Chronic obstructive pulmonary disease [Not Recovered/Not Resolved]

NARRATIVE: CASE EVENT DATE: 20220829
